FAERS Safety Report 9830608 (Version 1)
Quarter: 2014Q1

REPORT INFORMATION
  Report Type: Spontaneous
  Country: US (occurrence: US)
  Receive Date: 20140120
  Receipt Date: 20140120
  Transmission Date: 20141002
  Serious: Yes (Other)
  Sender: FDA-Public Use
  Company Number: US-ABBVIE-14P-163-1188473-00

PATIENT
  Age: 65 Year
  Sex: Male
  Weight: 82.63 kg

DRUGS (9)
  1. HUMIRA [Suspect]
     Indication: PRODUCT USED FOR UNKNOWN INDICATION
  2. GATTAX [Suspect]
     Indication: SHORT-BOWEL SYNDROME
     Route: 058
     Dates: start: 20131125
  3. LOMOTIL [Concomitant]
     Indication: PRODUCT USED FOR UNKNOWN INDICATION
  4. FOLIC ACID [Concomitant]
     Indication: PRODUCT USED FOR UNKNOWN INDICATION
     Dates: start: 2011
  5. XANAX [Concomitant]
     Indication: PRODUCT USED FOR UNKNOWN INDICATION
  6. NEXIUM [Concomitant]
     Indication: PRODUCT USED FOR UNKNOWN INDICATION
  7. GABAPENTIN [Concomitant]
     Indication: PRODUCT USED FOR UNKNOWN INDICATION
  8. SOLUTIONS FOR PARENTERAL NUTRITION [Concomitant]
     Indication: PRODUCT USED FOR UNKNOWN INDICATION
     Dates: end: 2013
  9. SOLUTIONS FOR PARENTERAL NUTRITION [Concomitant]
     Dates: start: 2013

REACTIONS (3)
  - Convulsion [Unknown]
  - Weight increased [Unknown]
  - Dyspnoea [Unknown]
